FAERS Safety Report 22178661 (Version 1)
Quarter: 2023Q2

REPORT INFORMATION
  Report Type: Spontaneous
  Country: FR (occurrence: FR)
  Receive Date: 20230405
  Receipt Date: 20230405
  Transmission Date: 20230722
  Serious: Yes (Hospitalization, Other)
  Sender: FDA-Public Use
  Company Number: None

PATIENT
  Age: 71 Year
  Sex: Male
  Weight: 75 kg

DRUGS (3)
  1. ELIQUIS [Suspect]
     Active Substance: APIXABAN
     Indication: Cerebrovascular accident prophylaxis
     Dosage: FREQUENCY TIME:1 DAY
     Route: 048
     Dates: end: 202301
  2. VALSARTAN [Suspect]
     Active Substance: VALSARTAN
     Indication: Product used for unknown indication
     Dosage: 80 MG
     Route: 048
     Dates: end: 202301
  3. AMIODARONE [Suspect]
     Active Substance: AMIODARONE
     Indication: Myocardial ischaemia
     Dosage: 200 MG
     Route: 048
     Dates: end: 20230105

REACTIONS (2)
  - Hyperthyroidism [Recovering/Resolving]
  - Interstitial lung disease [Recovering/Resolving]

NARRATIVE: CASE EVENT DATE: 20230104
